FAERS Safety Report 21550519 (Version 5)
Quarter: 2022Q4

REPORT INFORMATION
  Report Type: Spontaneous
  Country: UY (occurrence: UY)
  Receive Date: 20221103
  Receipt Date: 20221114
  Transmission Date: 20230112
  Serious: No
  Sender: FDA-Public Use
  Company Number: UY-PFIZER INC-PV202200068144

PATIENT
  Age: 65 Year
  Sex: Female

DRUGS (2)
  1. ENBREL [Suspect]
     Active Substance: ETANERCEPT
     Indication: Rheumatoid arthritis
     Dosage: 50 MG, WEEKLY
  2. ENBREL [Suspect]
     Active Substance: ETANERCEPT
     Dosage: 50 MG, WEEKLY
     Dates: start: 20220921

REACTIONS (6)
  - Muscular weakness [Not Recovered/Not Resolved]
  - Injection site pain [Not Recovered/Not Resolved]
  - Device issue [Unknown]
  - Drug dose omission by device [Unknown]
  - Device difficult to use [Unknown]
  - Finger deformity [Unknown]

NARRATIVE: CASE EVENT DATE: 20220822
